FAERS Safety Report 7099204-1 (Version None)
Quarter: 2010Q4

REPORT INFORMATION
  Report Type: 
  Country: None (occurrence: None)
  Receive Date: 20101112
  Receipt Date: 20101105
  Transmission Date: 20110411
  Serious: Yes (Hospitalization)
  Sender: FDA-Public Use
  Company Number: US-SANOFI-AVENTIS-2010SA059566

PATIENT
  Age: 82 Year
  Sex: Female
  Weight: 56.7 kg

DRUGS (14)
  1. LANTUS [Suspect]
     Dosage: 40UNITS/35UNITS
     Route: 058
     Dates: start: 20090101
  2. LANTUS [Suspect]
     Dosage: 40UNITS/35UNITS
     Route: 058
     Dates: start: 20090101
  3. SOLOSTAR [Suspect]
     Dates: start: 20090101
  4. HUMALOG [Concomitant]
     Dosage: TAKES A SHOT BEFORE EACH MEAL.
  5. AMLODIPINE [Concomitant]
     Dates: start: 20100101
  6. HYDROCHLOROTHIAZIDE [Concomitant]
     Dosage: ONCE IN THE AM
     Dates: start: 20100901
  7. METOPROLOL [Concomitant]
     Dates: start: 20080101
  8. LISINOPRIL [Concomitant]
  9. LOVASTATIN [Concomitant]
  10. FUROSEMIDE [Concomitant]
  11. BENEFIBER [Concomitant]
     Indication: NUTRITIONAL SUPPORT
     Dosage: 3 EACH TIME FOR BONE HEALTH
  12. ASPIRIN [Concomitant]
  13. ASCORBIC ACID [Concomitant]
  14. CENTRUM SILVER [Concomitant]

REACTIONS (1)
  - APPENDICITIS PERFORATED [None]
